FAERS Safety Report 5357875-1 (Version None)
Quarter: 2007Q2

REPORT INFORMATION
  Report Type: 
  Country: None (occurrence: None)
  Receive Date: 20070530
  Receipt Date: 20070110
  Transmission Date: 20071010
  Serious: Yes (Hospitalization)
  Sender: FDA-Public Use
  Company Number: US200701002393

PATIENT
  Age: 35 Year
  Sex: Female

DRUGS (4)
  1. ZYPREXA [Suspect]
     Dosage: 10 MG, 2/D
     Dates: start: 20000101, end: 20050101
  2. SERTRALINE [Concomitant]
  3. SUSTIVA  /CAN/  (EFAVIRENZ) [Concomitant]
  4. TOPAMAX /AUS/ (TOPIRAMATE) [Concomitant]

REACTIONS (1)
  - PANCREATITIS [None]
